FAERS Safety Report 7709021-4 (Version None)
Quarter: 2011Q3

REPORT INFORMATION
  Report Type: 
  Country: None (occurrence: None)
  Receive Date: 20110825
  Receipt Date: 20110816
  Transmission Date: 20111222
  Serious: Yes (Other)
  Sender: FDA-Public Use
  Company Number: US-ROCHE-772760

PATIENT
  Sex: Male
  Weight: 73 kg

DRUGS (3)
  1. MINOCYCLINE HCL [Concomitant]
  2. ACCUTANE [Suspect]
     Indication: ACNE
     Route: 065
     Dates: start: 19991101, end: 20000601
  3. ACCUTANE [Suspect]
     Route: 065
     Dates: start: 20001001, end: 20011201

REACTIONS (11)
  - COLITIS ULCERATIVE [None]
  - COLONIC POLYP [None]
  - INFLAMMATORY BOWEL DISEASE [None]
  - EPISTAXIS [None]
  - EMOTIONAL DISTRESS [None]
  - DEPRESSION [None]
  - LIP DRY [None]
  - IRRITABLE BOWEL SYNDROME [None]
  - ANAL FISSURE [None]
  - FRACTURE [None]
  - DRY SKIN [None]
